FAERS Safety Report 10273227 (Version 1)
Quarter: 2014Q3

REPORT INFORMATION
  Report Type: Spontaneous
  Country: TR (occurrence: TR)
  Receive Date: 20140702
  Receipt Date: 20140702
  Transmission Date: 20150326
  Serious: Yes (Other)
  Sender: FDA-Public Use
  Company Number: PHHY2014TR078704

PATIENT
  Sex: Female

DRUGS (3)
  1. METHOTREXATE [Suspect]
     Active Substance: METHOTREXATE
     Dosage: 1 MG/KG, QD
     Route: 030
  2. METHOTREXATE [Suspect]
     Active Substance: METHOTREXATE
     Indication: ECTOPIC PREGNANCY
     Dosage: 1 MG/KG, QD
     Route: 030
  3. FOLINIC ACID [Suspect]
     Active Substance: LEUCOVORIN
     Dosage: 0.1 MG/KG, QD
     Route: 030

REACTIONS (2)
  - Maternal exposure during pregnancy [Unknown]
  - Leukopenia [Recovered/Resolved]
